FAERS Safety Report 25916377 (Version 7)
Quarter: 2025Q4

REPORT INFORMATION
  Report Type: Report from Study
  Country: EU (occurrence: EU)
  Receive Date: 20251014
  Receipt Date: 20251222
  Transmission Date: 20260117
  Serious: Yes (Life-Threatening, Hospitalization, Other)
  Sender: AUROBINDO
  Company Number: EU-AUROBINDO-AUR-APL-2025-042116

PATIENT
  Age: 74 Year
  Sex: Male
  Weight: 71.7 kg

DRUGS (132)
  1. PRALATREXATE [Suspect]
     Active Substance: PRALATREXATE
     Indication: Peripheral T-cell lymphoma unspecified
     Dosage: 30 MILLIGRAM, CYCLICAL (CYCLE 1 DAY 1 )
     Dates: start: 20250714, end: 20250714
  2. PRALATREXATE [Suspect]
     Active Substance: PRALATREXATE
     Dosage: 30 MILLIGRAM, CYCLICAL (CYCLE 1 DAY 1 )
     Route: 065
     Dates: start: 20250813, end: 20250813
  3. PRALATREXATE [Suspect]
     Active Substance: PRALATREXATE
     Dosage: DAY 1 AND DAY 8 OF EACH 21 DAYS CYCLE
  4. PRALATREXATE [Suspect]
     Active Substance: PRALATREXATE
     Dosage: 30 MG/M2
     Route: 065
     Dates: start: 20250721, end: 20250721
  5. PRALATREXATE [Suspect]
     Active Substance: PRALATREXATE
     Dosage: 30 MG/M2
     Route: 065
     Dates: start: 20250821, end: 20250821
  6. PRALATREXATE [Suspect]
     Active Substance: PRALATREXATE
     Dosage: 30 MG/M2
     Route: 065
     Dates: start: 20250903, end: 20250903
  7. PRALATREXATE [Suspect]
     Active Substance: PRALATREXATE
     Dosage: 30 MG/M2
     Route: 065
     Dates: start: 20250910, end: 20250910
  8. PRALATREXATE [Suspect]
     Active Substance: PRALATREXATE
     Dosage: 30 MG/M2
     Route: 065
     Dates: start: 20250925, end: 20250925
  9. PRALATREXATE [Suspect]
     Active Substance: PRALATREXATE
     Dosage: 20 MG/M2
     Route: 065
     Dates: start: 20251029, end: 20251029
  10. PRALATREXATE [Suspect]
     Active Substance: PRALATREXATE
     Dosage: 20 MG/M2
     Route: 065
     Dates: start: 20250821, end: 20250821
  11. PRALATREXATE [Suspect]
     Active Substance: PRALATREXATE
     Dosage: 20 MG/M2
     Route: 065
     Dates: start: 20250910, end: 20250910
  12. PRALATREXATE [Suspect]
     Active Substance: PRALATREXATE
     Dosage: 20 MG/M2
     Route: 065
     Dates: start: 20250925, end: 20250925
  13. PRALATREXATE [Suspect]
     Active Substance: PRALATREXATE
     Dosage: 20 MG/M2
     Route: 065
     Dates: start: 20251105, end: 20251105
  14. PRALATREXATE [Suspect]
     Active Substance: PRALATREXATE
     Dosage: 20 MG/M2
     Route: 065
     Dates: start: 20251119, end: 20251119
  15. PRALATREXATE [Suspect]
     Active Substance: PRALATREXATE
     Dosage: 20 MG/M2
     Route: 065
     Dates: start: 20251126, end: 20251126
  16. VINCRISTINE [Suspect]
     Active Substance: VINCRISTINE
     Indication: Peripheral T-cell lymphoma unspecified
     Dosage: 1.4 MILLIGRAM, CYCLICAL (PER SQUARE METRE, TO BE RECEIVED ON DAY 1 OF EACH 21 DAYS CYCLE)
  17. CYCLOPHOSPHAMIDE [Suspect]
     Active Substance: CYCLOPHOSPHAMIDE
     Indication: Peripheral T-cell lymphoma unspecified
     Dosage: 750 MILLIGRAM/SQ. METER, CYCLICAL (CYCLE 1 DAY 1 )
     Dates: start: 20250714, end: 20250714
  18. CYCLOPHOSPHAMIDE [Suspect]
     Active Substance: CYCLOPHOSPHAMIDE
     Dosage: 750 MILLIGRAM/SQ. METER, CYCLICAL (CYCLE 1 DAY 1 )
     Route: 065
     Dates: start: 20250813, end: 20250813
  19. CYCLOPHOSPHAMIDE [Suspect]
     Active Substance: CYCLOPHOSPHAMIDE
     Dosage: 750 MILLIGRAM/SQ. METER, CYCLICAL (CYCLE 1 DAY 1 )
     Route: 065
     Dates: start: 20250903, end: 20250903
  20. CYCLOPHOSPHAMIDE [Suspect]
     Active Substance: CYCLOPHOSPHAMIDE
     Dosage: 750 MILLIGRAM/SQ. METER, CYCLICAL (CYCLE 5 DAY 1 )
     Route: 065
     Dates: start: 20251029, end: 20251029
  21. CYCLOPHOSPHAMIDE [Suspect]
     Active Substance: CYCLOPHOSPHAMIDE
     Dosage: 750 MILLIGRAM/SQ. METER, CYCLICAL (CYCLE 1 DAY 1 )
     Route: 065
     Dates: start: 20250903, end: 20250903
  22. CYCLOPHOSPHAMIDE [Suspect]
     Active Substance: CYCLOPHOSPHAMIDE
     Dosage: 750 MILLIGRAM/SQ. METER, CYCLICAL (CYCLE 1 DAY 1 )
     Route: 065
     Dates: start: 20250925, end: 20250925
  23. CYCLOPHOSPHAMIDE [Suspect]
     Active Substance: CYCLOPHOSPHAMIDE
     Dosage: 750 MILLIGRAM/SQ. METER, CYCLICAL (CYCLE 1 DAY 1 )
     Route: 065
     Dates: start: 20251119, end: 20251119
  24. ONCOVIN [Suspect]
     Active Substance: VINCRISTINE SULFATE
     Indication: Peripheral T-cell lymphoma unspecified
     Dosage: 1.4 MILLIGRAM/SQ. METER, CYCLICAL (CYCLE 1 DAY 1 )
     Dates: start: 20250714, end: 20250714
  25. ONCOVIN [Suspect]
     Active Substance: VINCRISTINE SULFATE
     Dosage: 1.4 MILLIGRAM/SQ. METER, CYCLICAL (CYCLE 1 DAY 1 )
     Dates: start: 20250903, end: 20250903
  26. ONCOVIN [Suspect]
     Active Substance: VINCRISTINE SULFATE
     Dosage: 1.4 MILLIGRAM/SQ. METER, CYCLICAL (CYCLE 1 DAY 1 )
     Dates: start: 20251029, end: 20251029
  27. PREDNISONE [Suspect]
     Active Substance: PREDNISONE
     Indication: Product used for unknown indication
     Dosage: 100 MILLIGRAM, CYCLICAL
     Route: 061
  28. PREDNISONE [Suspect]
     Active Substance: PREDNISONE
     Dosage: 100 MILLIGRAM
     Route: 065
  29. PREDNISONE [Suspect]
     Active Substance: PREDNISONE
     Dosage: 100 MILLIGRAM
     Route: 065
  30. PREDNISONE [Suspect]
     Active Substance: PREDNISONE
     Dosage: 100 MILLIGRAM
     Route: 065
  31. PREDNISONE [Suspect]
     Active Substance: PREDNISONE
     Dosage: 100 MILLIGRAM
     Route: 065
  32. PREDNISONE [Suspect]
     Active Substance: PREDNISONE
     Dosage: 100 MILLIGRAM
     Route: 065
  33. PREDNISONE [Suspect]
     Active Substance: PREDNISONE
     Dosage: 100 MILLIGRAM
     Route: 065
  34. PREDNISONE [Suspect]
     Active Substance: PREDNISONE
     Dosage: 100 MILLIGRAM
     Route: 065
  35. PREDNISONE [Suspect]
     Active Substance: PREDNISONE
     Dosage: 100 MILLIGRAM
     Route: 065
  36. PREDNISONE [Suspect]
     Active Substance: PREDNISONE
     Dosage: 100 MILLIGRAM
     Route: 065
  37. PREDNISONE [Suspect]
     Active Substance: PREDNISONE
     Dosage: 100 MILLIGRAM
     Route: 065
  38. PREDNISONE [Suspect]
     Active Substance: PREDNISONE
     Dosage: 100 MILLIGRAM
     Route: 065
  39. PREDNISONE [Suspect]
     Active Substance: PREDNISONE
     Dosage: 100 MILLIGRAM
     Route: 065
  40. PREDNISONE [Suspect]
     Active Substance: PREDNISONE
     Dosage: 100 MILLIGRAM
     Route: 065
  41. PREDNISONE [Suspect]
     Active Substance: PREDNISONE
     Dosage: 100 MILLIGRAM
     Route: 065
  42. PREDNISONE [Suspect]
     Active Substance: PREDNISONE
     Dosage: 100 MILLIGRAM
     Route: 065
  43. PREDNISONE [Suspect]
     Active Substance: PREDNISONE
     Dosage: 100 MILLIGRAM
     Route: 065
  44. PREDNISONE [Suspect]
     Active Substance: PREDNISONE
     Dosage: 100 MILLIGRAM
     Route: 065
  45. PREDNISONE [Suspect]
     Active Substance: PREDNISONE
     Dosage: 100 MILLIGRAM
     Route: 065
  46. PREDNISONE [Suspect]
     Active Substance: PREDNISONE
     Dosage: 100 MILLIGRAM
     Route: 065
  47. PREDNISONE [Suspect]
     Active Substance: PREDNISONE
     Dosage: 100 MILLIGRAM
     Route: 065
  48. PREDNISONE [Suspect]
     Active Substance: PREDNISONE
     Dosage: 100 MILLIGRAM
     Route: 065
  49. PREDNISONE [Suspect]
     Active Substance: PREDNISONE
     Dosage: 100 MILLIGRAM
     Route: 065
  50. PREDNISONE [Suspect]
     Active Substance: PREDNISONE
     Dosage: 100 MILLIGRAM
     Route: 065
  51. PREDNISONE [Suspect]
     Active Substance: PREDNISONE
     Dosage: 100 MILLIGRAM
     Route: 065
  52. PREDNISONE [Suspect]
     Active Substance: PREDNISONE
     Dosage: 100 MILLIGRAM
     Route: 065
  53. PREDNISONE [Suspect]
     Active Substance: PREDNISONE
     Dosage: 100 MILLIGRAM
     Route: 065
  54. PREDNISONE [Suspect]
     Active Substance: PREDNISONE
     Dosage: 100 MILLIGRAM
     Route: 065
  55. PREDNISONE [Suspect]
     Active Substance: PREDNISONE
     Dosage: 100 MILLIGRAM
     Route: 065
  56. PREDNISONE [Suspect]
     Active Substance: PREDNISONE
     Dosage: 100 MILLIGRAM
     Route: 065
  57. PREDNISONE [Suspect]
     Active Substance: PREDNISONE
     Dosage: 100 MILLIGRAM
     Route: 065
  58. PREDNISONE [Suspect]
     Active Substance: PREDNISONE
     Dosage: 100 MILLIGRAM
     Route: 065
  59. PREDNISONE [Suspect]
     Active Substance: PREDNISONE
     Dosage: 100 MILLIGRAM
     Route: 065
  60. PREDNISONE [Suspect]
     Active Substance: PREDNISONE
     Dosage: 100 MILLIGRAM
     Route: 065
  61. PREDNISONE [Suspect]
     Active Substance: PREDNISONE
     Dosage: 100 MILLIGRAM
     Route: 065
  62. PREDNISONE [Suspect]
     Active Substance: PREDNISONE
     Dosage: 100 MILLIGRAM
     Route: 065
  63. PREDNISONE [Suspect]
     Active Substance: PREDNISONE
     Dosage: 100 MILLIGRAM
     Route: 065
  64. PREDNISONE [Suspect]
     Active Substance: PREDNISONE
     Dosage: 100 MILLIGRAM
     Route: 065
  65. PREDNISONE [Suspect]
     Active Substance: PREDNISONE
     Dosage: 100 MILLIGRAM
     Route: 065
  66. PREDNISONE [Suspect]
     Active Substance: PREDNISONE
     Dosage: 100 MILLIGRAM
     Route: 065
  67. PREDNISONE [Suspect]
     Active Substance: PREDNISONE
     Dosage: 100 MILLIGRAM
     Route: 065
  68. PREDNISONE [Suspect]
     Active Substance: PREDNISONE
     Dosage: 100 MILLIGRAM
     Route: 065
  69. PREDNISONE [Suspect]
     Active Substance: PREDNISONE
     Dosage: 100 MILLIGRAM
     Route: 065
  70. PREDNISONE [Suspect]
     Active Substance: PREDNISONE
     Dosage: 100 MILLIGRAM
     Route: 065
  71. PREDNISONE [Suspect]
     Active Substance: PREDNISONE
     Dosage: 100 MILLIGRAM
     Route: 065
  72. PREDNISONE [Suspect]
     Active Substance: PREDNISONE
     Dosage: 100 MILLIGRAM
     Route: 065
  73. PREDNISONE [Suspect]
     Active Substance: PREDNISONE
     Dosage: 100 MILLIGRAM
     Route: 065
  74. PREDNISONE [Suspect]
     Active Substance: PREDNISONE
     Dosage: 100 MILLIGRAM
     Route: 065
  75. NEBIVOLOL HYDROCHLORIDE [Concomitant]
     Active Substance: NEBIVOLOL HYDROCHLORIDE
     Indication: Hypertension
     Dosage: 2.5 MILLIGRAM, TWO TIMES A DAY
     Route: 061
     Dates: start: 20000101
  76. AMLODIPINE BESYLATE\INDAPAMIDE\PERINDOPRIL ARGININE [Concomitant]
     Active Substance: AMLODIPINE BESYLATE\INDAPAMIDE\PERINDOPRIL ARGININE
     Indication: Hypertension
     Dosage: 5 MILLIGRAM, ONCE A DAY
     Route: 061
     Dates: start: 20160101
  77. AMLODIPINE BESYLATE\INDAPAMIDE\PERINDOPRIL ARGININE [Concomitant]
     Active Substance: AMLODIPINE BESYLATE\INDAPAMIDE\PERINDOPRIL ARGININE
     Dosage: UNK UNK, ONCE A DAY (5/1,25/5 MILLIGRAM)
     Route: 061
     Dates: start: 20160101
  78. AMLODIPINE BESYLATE\INDAPAMIDE\PERINDOPRIL ARGININE [Concomitant]
     Active Substance: AMLODIPINE BESYLATE\INDAPAMIDE\PERINDOPRIL ARGININE
     Dosage: UNK UNK, ONCE A DAY (5/5 MILLIGRAM)
     Route: 061
     Dates: start: 20121201
  79. AMLODIPINE BESYLATE\PERINDOPRIL ARGININE [Concomitant]
     Active Substance: AMLODIPINE BESYLATE\PERINDOPRIL ARGININE
     Indication: Hypertension
     Dosage: 1 MILLIGRAM, ONCE A DAY
     Route: 061
     Dates: start: 20221201
  80. ALLOPURINOL [Concomitant]
     Active Substance: ALLOPURINOL
     Indication: Hyperuricaemia
     Dosage: 100 MILLIGRAM, ONCE A DAY
     Route: 061
     Dates: start: 20000101
  81. DUAMILD [Concomitant]
     Indication: Benign prostatic hyperplasia
     Dosage: 0,4/5 MILLIGRAM
     Route: 061
     Dates: start: 20231001
  82. PANCRELIPASE [Concomitant]
     Active Substance: PANCRELIPASE
     Indication: Gastritis
     Dosage: 10000 INTERNATIONAL UNIT, 3 TIMES A DAY
     Route: 061
     Dates: start: 20230101
  83. PANCRELIPASE [Concomitant]
     Active Substance: PANCRELIPASE
     Indication: Cholelithiasis
  84. ELIQUIS [Concomitant]
     Active Substance: APIXABAN
     Indication: Deep vein thrombosis
     Dosage: 5 MILLIGRAM, TWO TIMES A DAY
     Route: 061
     Dates: start: 20250124
  85. D3 VITAMIN [Concomitant]
     Indication: Osteoporosis
     Dosage: 3000 INTERNATIONAL UNIT, ONCE A DAY
     Route: 061
     Dates: start: 20250301
  86. DOXAZOSIN MESYLATE [Concomitant]
     Active Substance: DOXAZOSIN MESYLATE
     Indication: Hypertension
     Dosage: REGGEL 2, MG TWO TIMES A DAY
     Route: 061
     Dates: start: 20221201
  87. DOXAZOSIN MESYLATE [Concomitant]
     Active Substance: DOXAZOSIN MESYLATE
     Dosage: 2 MILLIGRAM, ONCE A DAY
     Route: 061
     Dates: start: 20250808
  88. FAMOTIDINE [Concomitant]
     Active Substance: FAMOTIDINE
     Indication: Prophylaxis
     Dosage: 40 MILLIGRAM, ONCE A DAY
     Route: 061
     Dates: start: 20241101
  89. MAGNESIUM CARBONATE\MAGNESIUM OXIDE [Concomitant]
     Active Substance: MAGNESIUM CARBONATE\MAGNESIUM OXIDE
     Indication: Vitamin supplementation
     Dosage: 1 OTHER SACHET
     Route: 061
     Dates: start: 20230101
  90. RILMENIDINE [Concomitant]
     Active Substance: RILMENIDINE
     Indication: Hypertension
     Dosage: 1 MILLIGRAM, TWO TIMES A DAY
     Route: 061
     Dates: start: 20000101
  91. FOLIC ACID [Concomitant]
     Active Substance: FOLIC ACID
     Indication: Product used for unknown indication
     Dosage: 1 MILLIGRAM, ONCE A DAY
     Route: 061
     Dates: start: 20250625
  92. FOLIC ACID [Concomitant]
     Active Substance: FOLIC ACID
     Dosage: 1 MILLIGRAM, ONCE A DAY
     Route: 061
     Dates: start: 20250729
  93. VITAMIN B12 [Concomitant]
     Active Substance: CYANOCOBALAMIN
     Indication: Product used for unknown indication
     Dosage: 1000 MICROGRAM, ONCE A DAY
     Dates: start: 20250703, end: 20250703
  94. FAMOTIDINE [Concomitant]
     Active Substance: FAMOTIDINE
     Indication: Gastric ulcer
     Dosage: 40 MILLIGRAM, TWO TIMES A DAY
     Dates: start: 20250803, end: 20250808
  95. FAMOTIDINE [Concomitant]
     Active Substance: FAMOTIDINE
     Dosage: 40 MILLIGRAM, TWO TIMES A DAY
     Dates: start: 20250808
  96. FAMOTIDINE [Concomitant]
     Active Substance: FAMOTIDINE
     Indication: Gastric ulcer
     Dosage: 40 MILLIGRAM, TWO TIMES A DAY
     Route: 061
     Dates: start: 20250808
  97. AMOXICILLIN\CLAVULANIC ACID [Concomitant]
     Active Substance: AMOXICILLIN\CLAVULANIC ACID
     Indication: Product used for unknown indication
     Dosage: 1000 MILLIGRAM, TWO TIMES A DAY
     Route: 061
     Dates: start: 20250725, end: 20250801
  98. CARBOHYDRATES\FATTY ACIDS\MINERALS\PROTEIN\VITAMINS [Concomitant]
     Active Substance: CARBOHYDRATES\FATTY ACIDS\MINERALS\PROTEIN\VITAMINS
     Indication: Feeding disorder
     Dosage: 200 MILLILITER, TWO TIMES A DAY
     Route: 061
     Dates: start: 20250729
  99. CHARCOAL [Concomitant]
     Active Substance: ACTIVATED CHARCOAL
     Indication: Product used for unknown indication
     Dosage: 500 MILLIGRAM, TWO TIMES A DAY
     Route: 061
     Dates: start: 20250728, end: 20250729
  100. APIXABAN [Concomitant]
     Active Substance: APIXABAN
     Indication: Thrombosis
     Dosage: 5 MILLIGRAM, TWO TIMES A DAY
     Route: 061
     Dates: start: 20250202
  101. FLUCONAZOLE [Concomitant]
     Active Substance: FLUCONAZOLE
     Indication: Thrombosis
     Dosage: 200 MILLIGRAM, ONCE A DAY
     Route: 061
     Dates: start: 20250808
  102. benzydamin [Concomitant]
     Indication: Thrombosis
     Dosage: UNK (1 PUFF)
     Route: 061
     Dates: start: 20250725, end: 20250802
  103. FLUCONAZOLE [Concomitant]
     Active Substance: FLUCONAZOLE
     Indication: Thrombosis
     Dosage: 200 MILLIGRAM, ONCE A DAY
     Dates: start: 20250803, end: 20250807
  104. ACYCLOVIR [Concomitant]
     Active Substance: ACYCLOVIR
     Indication: Viral infection
     Dosage: 400 MILLIGRAM, ONCE A DAY
     Route: 061
     Dates: start: 20250814
  105. calcium-folinate [Concomitant]
     Indication: Product used for unknown indication
     Dosage: UNK, 3 TIMES A DAY (1 OTHER)
     Route: 061
     Dates: start: 20250803, end: 20250808
  106. NYSTATIN [Concomitant]
     Active Substance: NYSTATIN
     Indication: Product used for unknown indication
     Dosage: UNK, 3 TIMES A DAY ( 1 OTHER)
     Route: 061
     Dates: start: 20250803, end: 20250811
  107. ALLOPURINOL [Concomitant]
     Active Substance: ALLOPURINOL
     Indication: Prophylaxis
     Dosage: 300 MILLIGRAM, ONCE A DAY
     Route: 061
     Dates: start: 20250715
  108. PRENOXDIAZIN [Concomitant]
     Indication: Bronchitis
     Dosage: 100 MILLIGRAM, 3 TIMES A DAY
     Route: 061
     Dates: start: 20250919, end: 20250921
  109. AZITHROMYCIN [Concomitant]
     Active Substance: AZITHROMYCIN
     Indication: Bronchitis
     Dosage: 500 MILLIGRAM, ONCE A DAY
     Route: 061
     Dates: start: 20250919, end: 20250927
  110. ACETYLCYSTEINE [Concomitant]
     Active Substance: ACETYLCYSTEINE
     Indication: Bronchitis
     Dosage: 600 MILLIGRAM, ONCE A DAY
     Route: 061
     Dates: start: 20250925, end: 20251014
  111. METAMIZOLE SODIUM [Concomitant]
     Active Substance: METAMIZOLE SODIUM
     Indication: Pharyngitis
     Dosage: 1000 MILLIGRAM, ONCE A DAY
     Route: 061
     Dates: start: 20250930, end: 20251006
  112. LEVOFLOXACIN [Concomitant]
     Active Substance: LEVOFLOXACIN
     Indication: Pharyngitis
     Dosage: 500 MILLIGRAM, ONCE A DAY
     Route: 061
     Dates: start: 20250930, end: 20251005
  113. SACCHAROMYCES CEREVISIAE [Concomitant]
     Active Substance: SACCHAROMYCES CEREVISIAE
     Indication: Prophylaxis
     Dosage: 250 MILLIGRAM, TWO TIMES A DAY
     Route: 061
     Dates: start: 20250930
  114. CEFTAZIDIME [Concomitant]
     Active Substance: CEFTAZIDIME
     Indication: Bronchitis
     Dosage: 1 GRAM, 3 TIMES A DAY
     Dates: start: 20251006, end: 20251013
  115. CEFTAZIDIME [Concomitant]
     Active Substance: CEFTAZIDIME
     Indication: Febrile neutropenia
  116. AMIKACIN [Concomitant]
     Active Substance: AMIKACIN
     Indication: Bronchitis
     Dosage: 1000 MILLIGRAM, ONCE A DAY
     Dates: start: 20251006, end: 20251013
  117. AMIKACIN [Concomitant]
     Active Substance: AMIKACIN
     Indication: Febrile neutropenia
  118. Filgratism [Concomitant]
     Indication: Bronchitis
     Dosage: 48 MU, ONCE A DAY
     Dates: start: 20251006, end: 20251008
  119. Filgratism [Concomitant]
     Indication: Febrile neutropenia
  120. POTASSIUM CHLORIDE [Concomitant]
     Active Substance: POTASSIUM CHLORIDE
     Indication: Hypokalaemia
     Dosage: 3 GRAM, ONCE A DAY
     Dates: start: 20251007, end: 20251007
  121. POTASSIUM CHLORIDE [Concomitant]
     Active Substance: POTASSIUM CHLORIDE
     Dosage: 2 GRAM, ONCE A DAY
     Dates: start: 20251008, end: 20251008
  122. POTASSIUM CHLORIDE [Concomitant]
     Active Substance: POTASSIUM CHLORIDE
     Dosage: 2 GRAM, ONCE A DAY
     Dates: start: 20251010, end: 20251010
  123. POTASSIUM CHLORIDE [Concomitant]
     Active Substance: POTASSIUM CHLORIDE
     Dosage: 1200 MILLIGRAM, TWO TIMES A DAY
     Route: 061
     Dates: start: 20251013, end: 20251014
  124. Isolyte [Concomitant]
     Indication: Supportive care
     Dosage: 1000 MILLILITER, ONCE A DAY
     Dates: start: 20251007, end: 20251008
  125. Isolyte [Concomitant]
     Dosage: 500 MILLILITER, ONCE A DAY
     Dates: start: 20251010, end: 20251012
  126. LACTULOSE [Concomitant]
     Active Substance: LACTULOSE
     Indication: Constipation
     Dosage: 20 MILLILITER, ONCE A DAY
     Route: 061
     Dates: start: 20251007, end: 20251007
  127. SALINE [Concomitant]
     Active Substance: SODIUM CHLORIDE
     Indication: Hypotension
     Dosage: 500 MILLILITER, 3 TIMES A DAY
     Dates: start: 20251016, end: 20251019
  128. Enterol [Concomitant]
     Indication: Gastritis
     Dosage: 250 MILLIGRAM, TWO TIMES A DAY
     Route: 061
     Dates: start: 20251016, end: 20251021
  129. AMLODIPINE BESYLATE [Concomitant]
     Active Substance: AMLODIPINE BESYLATE
     Indication: Product used for unknown indication
     Dosage: 5 MILLIGRAM, ONCE A DAY
     Route: 061
     Dates: start: 20251018, end: 20251021
  130. ENOXAPARIN SODIUM [Concomitant]
     Active Substance: ENOXAPARIN SODIUM
     Indication: Product used for unknown indication
     Dosage: 0.4 MILLILITER, ONCE A DAY
     Dates: start: 20251017, end: 20251020
  131. AMPHOTERICIN B [Concomitant]
     Active Substance: AMPHOTERICIN B
     Indication: Product used for unknown indication
     Dosage: UNK, 3 TIMES A DAY
     Route: 048
     Dates: start: 20251203
  132. MEROPENEM [Concomitant]
     Active Substance: MEROPENEM
     Indication: Product used for unknown indication
     Dosage: 1 GRAM, 3 TIMES A DAY
     Dates: start: 20251205

REACTIONS (12)
  - Stomatitis [Recovered/Resolved]
  - Febrile neutropenia [Recovered/Resolved with Sequelae]
  - Oral fungal infection [Recovered/Resolved]
  - Bronchitis [Recovered/Resolved]
  - Urinary tract infection [Recovering/Resolving]
  - Anaemia [Recovered/Resolved]
  - Mucosal infection [Recovered/Resolved]
  - False positive investigation result [Not Recovered/Not Resolved]
  - Diarrhoea [Recovered/Resolved]
  - Pharyngitis [Recovered/Resolved]
  - Cystitis [Recovered/Resolved]
  - Weight decreased [Unknown]

NARRATIVE: CASE EVENT DATE: 20250709
